FAERS Safety Report 7439670-2 (Version None)
Quarter: 2011Q2

REPORT INFORMATION
  Report Type: 
  Country: None (occurrence: None)
  Receive Date: 20110427
  Receipt Date: 20110412
  Transmission Date: 20111010
  Serious: Yes (Other)
  Sender: FDA-Public Use
  Company Number: PHHY2011US30699

PATIENT
  Sex: Male
  Weight: 64.626 kg

DRUGS (7)
  1. ACETYLSALICYLIC ACID SRT [Concomitant]
     Route: 048
  2. GEVITAL [Concomitant]
     Route: 048
  3. GLEEVEC [Suspect]
     Indication: CHRONIC MYELOID LEUKAEMIA
     Dosage: 300 MG, QD
     Route: 048
     Dates: start: 20080115
  4. VITAMIN D [Concomitant]
     Route: 048
  5. LASIX [Concomitant]
     Route: 048
  6. LIPITOR [Concomitant]
     Route: 048
  7. FOSAMAX [Concomitant]
     Route: 048

REACTIONS (2)
  - NEOPLASM MALIGNANT [None]
  - LUNG NEOPLASM MALIGNANT [None]
